FAERS Safety Report 21479187 (Version 1)
Quarter: 2022Q4

REPORT INFORMATION
  Report Type: Spontaneous
  Country: US (occurrence: US)
  Receive Date: 20221019
  Receipt Date: 20221019
  Transmission Date: 20230113
  Serious: No
  Sender: FDA-Public Use
  Company Number: US-ALLERGAN-2210978US

PATIENT
  Sex: Female

DRUGS (3)
  1. ALPHAGAN P [Suspect]
     Active Substance: BRIMONIDINE TARTRATE
     Indication: Glaucoma
     Dosage: 4 GTT, BID, ACTUAL: TWO DROPS IN EACH EYE TWICE A DAY
  2. ALPHAGAN P [Suspect]
     Active Substance: BRIMONIDINE TARTRATE
     Indication: Intraocular pressure increased
     Dosage: 4 GTT, BID, ACTUAL: TWO DROPS IN EACH EYE TWICE A DAY
  3. ALPHAGAN P [Suspect]
     Active Substance: BRIMONIDINE TARTRATE
     Dosage: 4 GTT, BID, ACTUAL: TWO DROPS IN EACH EYE TWICE A DAY

REACTIONS (5)
  - Product package associated injury [Unknown]
  - Incorrect dose administered [Unknown]
  - Product storage error [Unknown]
  - Expired product administered [Unknown]
  - Product delivery mechanism issue [Unknown]
